FAERS Safety Report 24642785 (Version 1)
Quarter: 2024Q4

REPORT INFORMATION
  Report Type: Spontaneous
  Country: CA (occurrence: CA)
  Receive Date: 20241120
  Receipt Date: 20241120
  Transmission Date: 20250115
  Serious: Yes (Life-Threatening, Hospitalization)
  Sender: CSL BEHRING
  Company Number: CA-BEH-2024185515

PATIENT
  Age: 4 Year
  Sex: Male

DRUGS (15)
  1. ALBUMIN HUMAN [Suspect]
     Active Substance: ALBUMIN HUMAN
     Indication: Haemodynamic instability
     Dosage: INJECTION
     Route: 065
  2. ALBUMIN HUMAN [Suspect]
     Active Substance: ALBUMIN HUMAN
     Indication: Budd-Chiari syndrome
     Dosage: UNK
     Route: 042
  3. EPINEPHRINE [Suspect]
     Active Substance: EPINEPHRINE
     Indication: Haemodynamic instability
     Dosage: SOLUTION FOR INJECTION
     Route: 065
  4. EPINEPHRINE [Suspect]
     Active Substance: EPINEPHRINE
     Indication: Budd-Chiari syndrome
     Dosage: UNK
     Route: 065
  5. HEPARIN [Suspect]
     Active Substance: HEPARIN SODIUM
     Indication: Hepatic vein thrombosis
     Dosage: INFUSION
     Route: 065
  6. HEPARIN [Suspect]
     Active Substance: HEPARIN SODIUM
     Indication: Haemodynamic instability
     Dosage: INFUSION
     Route: 065
  7. HEPARIN [Suspect]
     Active Substance: HEPARIN SODIUM
     Indication: Budd-Chiari syndrome
     Dosage: 1300.0 IU
     Route: 065
  8. HEPARIN [Suspect]
     Active Substance: HEPARIN SODIUM
     Indication: Anticoagulant therapy
     Dosage: INFUSION
     Route: 065
  9. SODIUM CHLORIDE [Suspect]
     Active Substance: SODIUM CHLORIDE
     Indication: Haemodynamic instability
     Dosage: INJECTION
     Route: 065
  10. SODIUM CHLORIDE [Suspect]
     Active Substance: SODIUM CHLORIDE
     Indication: Budd-Chiari syndrome
     Dosage: UNK
     Route: 042
  11. PHENYLEPHRINE [Suspect]
     Active Substance: PHENYLEPHRINE
     Indication: Haemodynamic instability
     Dosage: UNK
     Route: 047
  12. PHENYLEPHRINE [Suspect]
     Active Substance: PHENYLEPHRINE
     Indication: Budd-Chiari syndrome
     Dosage: INJECTION
     Route: 065
  13. SODIUM BICARBONATE [Suspect]
     Active Substance: SODIUM BICARBONATE
     Indication: Haemodynamic instability
     Route: 042
  14. SODIUM BICARBONATE [Suspect]
     Active Substance: SODIUM BICARBONATE
     Indication: Budd-Chiari syndrome
     Dosage: INJECTION
     Route: 065
  15. ENOXAPARIN [Concomitant]
     Active Substance: ENOXAPARIN
     Dosage: INJECTION

REACTIONS (1)
  - Therapy non-responder [Unknown]
